FAERS Safety Report 20108423 (Version 1)
Quarter: 2021Q4

REPORT INFORMATION
  Report Type: Spontaneous
  Country: US (occurrence: US)
  Receive Date: 20211124
  Receipt Date: 20211124
  Transmission Date: 20220303
  Serious: No
  Sender: FDA-Public Use
  Company Number: US-PERRIGO-21US011462

PATIENT
  Sex: Female
  Weight: 51.701 kg

DRUGS (10)
  1. POLYETHYLENE GLYCOL 3350 [Suspect]
     Active Substance: POLYETHYLENE GLYCOL 3350
     Indication: Abdominal distension
     Dosage: 17 G, QD
     Route: 048
     Dates: start: 202003, end: 202006
  2. POLYETHYLENE GLYCOL 3350 [Suspect]
     Active Substance: POLYETHYLENE GLYCOL 3350
     Indication: Flatulence
     Dosage: 17 G, QD
     Route: 048
     Dates: start: 202105, end: 20210815
  3. MIRALAX [Suspect]
     Active Substance: POLYETHYLENE GLYCOL 3350
     Indication: Flatulence
     Dosage: 17 G, NIGHTLY
     Route: 048
     Dates: start: 202007, end: 202105
  4. MIRALAX [Suspect]
     Active Substance: POLYETHYLENE GLYCOL 3350
     Indication: Abdominal distension
  5. VITAMIN D                          /00107901/ [Concomitant]
     Indication: Routine health maintenance
     Dosage: UNK
     Route: 065
     Dates: start: 2017
  6. VITAMIN E                          /00110501/ [Concomitant]
     Indication: Routine health maintenance
     Dosage: UNK
     Route: 065
     Dates: start: 2007
  7. B12                                /00056201/ [Concomitant]
     Indication: Anaemia vitamin B12 deficiency
     Dosage: ONCE PER MONTH
     Route: 030
     Dates: start: 2015
  8. ALPRAZOLAM [Concomitant]
     Active Substance: ALPRAZOLAM
     Indication: Anxiety
     Dosage: UNK, BID
     Route: 065
     Dates: start: 2012
  9. CARBIDOPA\LEVODOPA [Concomitant]
     Active Substance: CARBIDOPA\LEVODOPA
     Indication: Tremor
     Dosage: UNKNOWN, 8 TIMES DAILY
     Route: 065
     Dates: start: 2020
  10. PROBIOTICS NOS [Concomitant]
     Active Substance: PROBIOTICS NOS
     Indication: Product used for unknown indication
     Dosage: UNK
     Route: 065
     Dates: start: 2021

REACTIONS (11)
  - Dry mouth [Not Recovered/Not Resolved]
  - Dry eye [Not Recovered/Not Resolved]
  - Nasal dryness [Not Recovered/Not Resolved]
  - Dry skin [Not Recovered/Not Resolved]
  - Drug interaction [Not Recovered/Not Resolved]
  - Tremor [Not Recovered/Not Resolved]
  - Anxiety [Not Recovered/Not Resolved]
  - Psychomotor hyperactivity [Not Recovered/Not Resolved]
  - Drug ineffective for unapproved indication [Unknown]
  - Off label use [Recovered/Resolved]
  - Incorrect product administration duration [Recovered/Resolved]

NARRATIVE: CASE EVENT DATE: 20200101
